FAERS Safety Report 24524551 (Version 4)
Quarter: 2025Q1

REPORT INFORMATION
  Report Type: Spontaneous
  Country: US (occurrence: US)
  Receive Date: 20241019
  Receipt Date: 20250323
  Transmission Date: 20250408
  Serious: Yes (Other)
  Sender: SANOFI AVENTIS
  Company Number: US-SA-2024SA297103

PATIENT
  Sex: Female
  Weight: 68.4 kg

DRUGS (3)
  1. KEVZARA [Suspect]
     Active Substance: SARILUMAB
     Indication: Rheumatoid arthritis
     Dosage: 200 MG, QOW
     Route: 058
  2. TYLENOL [Concomitant]
     Active Substance: ACETAMINOPHEN
  3. VITAMIN D3 [Concomitant]
     Active Substance: CHOLECALCIFEROL

REACTIONS (4)
  - Parathyroid tumour [Unknown]
  - Myalgia [Unknown]
  - Fatigue [Not Recovered/Not Resolved]
  - Red blood cell sedimentation rate decreased [Unknown]

NARRATIVE: CASE EVENT DATE: 20241201
